FAERS Safety Report 9083910 (Version 1)
Quarter: 2013Q1

REPORT INFORMATION
  Report Type: Report from Study
  Country: US (occurrence: US)
  Receive Date: 20130131
  Receipt Date: 20130131
  Transmission Date: 20140127
  Serious: No
  Sender: FDA-Public Use
  Company Number: US-ABBOTT-12P-163-1010828-00

PATIENT
  Age: 62 Year
  Sex: Female

DRUGS (10)
  1. HUMIRA [Suspect]
     Indication: CROHN^S DISEASE
     Dosage: EVERY TWO WEEKS
     Route: 058
     Dates: start: 201102
  2. IMURAN [Concomitant]
     Indication: CROHN^S DISEASE
     Dosage: 50 MG 4 TABS DAILY
  3. PENTASA [Concomitant]
     Indication: CROHN^S DISEASE
  4. CREON [Concomitant]
     Indication: GASTROINTESTINAL DISORDER
     Dosage: 3 CAPSULES DAILY
  5. ALDACTONE [Concomitant]
     Indication: FLUID RETENTION
  6. FOLIC ACID [Concomitant]
     Indication: VITAMIN SUPPLEMENTATION
  7. B12 [Concomitant]
     Indication: VITAMIN SUPPLEMENTATION
     Dosage: EVERY TWO WEEKS
  8. POTASSIUM CHLORIDE [Concomitant]
     Indication: VITAMIN SUPPLEMENTATION
  9. VITAMIN D [Concomitant]
     Indication: PRODUCT USED FOR UNKNOWN INDICATION
  10. VITAMIN D [Concomitant]
     Dosage: 2000 UNITS DAILY

REACTIONS (5)
  - Vitamin D decreased [Unknown]
  - Malaise [Not Recovered/Not Resolved]
  - Oropharyngeal pain [Not Recovered/Not Resolved]
  - Cough [Not Recovered/Not Resolved]
  - Respiratory tract congestion [Not Recovered/Not Resolved]
